FAERS Safety Report 9972857 (Version 1)
Quarter: 2014Q1

REPORT INFORMATION
  Report Type: Spontaneous
  Country: US (occurrence: None)
  Receive Date: 20140127
  Receipt Date: 20140127
  Transmission Date: 20141002
  Serious: Yes (Other)
  Sender: FDA-Public Use
  Company Number: 1304230

PATIENT
  Age: 70 Year
  Sex: Male

DRUGS (2)
  1. RITUXAN [Suspect]
     Indication: CHRONIC LYMPHOCYTIC LEUKAEMIA
     Dosage: TRIED 1.5-2 YEARS AGO, NVEVER RECHALLENGED, UNKNOWN
  2. ARZERRA (OFATUMUMAB) [Concomitant]

REACTIONS (2)
  - Anaphylactic reaction [None]
  - Drug intolerance [None]
